FAERS Safety Report 4867265-3 (Version None)
Quarter: 2005Q4

REPORT INFORMATION
  Report Type: 
  Country: None (occurrence: None)
  Receive Date: 20051227
  Receipt Date: 20051227
  Transmission Date: 20060501
  Serious: No
  Sender: FDA-Public Use
  Company Number: None

PATIENT
  Age: 60 Year
  Sex: Female
  Weight: 73.4827 kg

DRUGS (7)
  1. MOBIC [Suspect]
     Indication: ARTHRITIS
     Dosage: 7.5MG ORALLY DAILY
     Route: 048
     Dates: start: 20051027, end: 20051120
  2. ACTONEL [Concomitant]
  3. ALTACE [Concomitant]
  4. EMINEM [Concomitant]
  5. ESTRACE [Concomitant]
  6. NEURONTIN [Concomitant]
  7. ULTRAM [Concomitant]

REACTIONS (4)
  - CHEST PAIN [None]
  - DYSPNOEA [None]
  - OEDEMA PERIPHERAL [None]
  - RASH [None]
